FAERS Safety Report 23876982 (Version 1)
Quarter: 2024Q2

REPORT INFORMATION
  Report Type: Report from Study
  Country: US (occurrence: US)
  Receive Date: 20240521
  Receipt Date: 20240521
  Transmission Date: 20240716
  Serious: Yes (Other)
  Sender: FDA-Public Use
  Company Number: US-002147023-NVSC2024US091283

PATIENT
  Sex: Female

DRUGS (1)
  1. KESIMPTA [Suspect]
     Active Substance: OFATUMUMAB
     Indication: Multiple sclerosis
     Dosage: UNK, UNKNOWN
     Route: 065

REACTIONS (7)
  - Multiple sclerosis pseudo relapse [Unknown]
  - Multiple sclerosis [Unknown]
  - Condition aggravated [Unknown]
  - Memory impairment [Unknown]
  - Gait disturbance [Unknown]
  - Muscle tightness [Unknown]
  - Trigger points [Unknown]
